FAERS Safety Report 15000159 (Version 1)
Quarter: 2018Q2

REPORT INFORMATION
  Report Type: Spontaneous
  Country: US (occurrence: US)
  Receive Date: 20180612
  Receipt Date: 20180612
  Transmission Date: 20180711
  Serious: No
  Sender: FDA-Public Use
  Company Number: US-PERRIGO-18US000126

PATIENT
  Sex: Female

DRUGS (1)
  1. AZELASTINE HYDROCHLORIDE. [Suspect]
     Active Substance: AZELASTINE HYDROCHLORIDE
     Indication: PRODUCT USED FOR UNKNOWN INDICATION
     Dosage: UNKNOWN, UNKNOWN
     Route: 045
     Dates: start: 201801

REACTIONS (8)
  - Wheezing [Not Recovered/Not Resolved]
  - Lip swelling [Unknown]
  - Throat tightness [Unknown]
  - Hypersensitivity [Not Recovered/Not Resolved]
  - Flushing [Unknown]
  - Ear pruritus [Unknown]
  - Pruritus [Unknown]
  - Cough [Not Recovered/Not Resolved]

NARRATIVE: CASE EVENT DATE: 201801
